FAERS Safety Report 6104362-9 (Version None)
Quarter: 2009Q1

REPORT INFORMATION
  Report Type: 
  Country: None (occurrence: None)
  Receive Date: 20090305
  Receipt Date: 20090226
  Transmission Date: 20090719
  Serious: Yes (Other)
  Sender: FDA-Public Use
  Company Number: US-ELI_LILLY_AND_COMPANY-US200903000565

PATIENT
  Age: 16 Year
  Sex: Male

DRUGS (3)
  1. STRATTERA [Suspect]
     Dosage: 40 MG, UNKNOWN
     Route: 065
  2. STRATTERA [Suspect]
     Dosage: 60 MG, UNKNOWN
     Route: 065
  3. STRATTERA [Suspect]
     Dosage: 40 MG, UNKNOWN
     Route: 065

REACTIONS (1)
  - SYNCOPE [None]
